FAERS Safety Report 7775575-5 (Version None)
Quarter: 2011Q3

REPORT INFORMATION
  Report Type: 
  Country: None (occurrence: None)
  Receive Date: 20110923
  Receipt Date: 20110922
  Transmission Date: 20111222
  Serious: Yes (Death)
  Sender: FDA-Public Use
  Company Number: GB-ROCHE-741441

PATIENT
  Sex: Female
  Weight: 66 kg

DRUGS (5)
  1. DOCETAXEL [Suspect]
     Dosage: DOSE: 75 MG/M2, FORM: VIALS, LAST DOSE PRIOR TO SAE: 05 NOVEMBER 2010
     Route: 042
     Dates: start: 20100716
  2. CARBOPLATIN [Suspect]
     Dosage: DOSE: 6 AUC, FORM: VIALS, LAST DOSE PRIOR TO SAE: 05 NOVEMBER 2010
     Route: 042
     Dates: start: 20100716
  3. BEVACIZUMAB [Suspect]
     Dosage: DOSAGE FORM: VIALS; DOSE LEVEL: 15 MG/KG; LAST DOSE PRIOR TO SAE: 08 OCT 2010
     Route: 042
     Dates: start: 20100716
  4. TRASTUZUMAB [Suspect]
     Dosage: LOADING DOSE
     Route: 042
     Dates: start: 20100716
  5. TRASTUZUMAB [Suspect]
     Dosage: DOSE: 6 MG/KG, FORM: VIALS, LAST DOSE PRIOR TO SAE: 05 NOVEMBER 2010
     Route: 042
     Dates: start: 20100807

REACTIONS (2)
  - ASPIRATION [None]
  - GASTROINTESTINAL INFECTION [None]
